FAERS Safety Report 7600497-X (Version None)
Quarter: 2011Q3

REPORT INFORMATION
  Report Type: 
  Country: None (occurrence: None)
  Receive Date: 20110706
  Receipt Date: 20110706
  Transmission Date: 20111222
  Serious: Yes (Other)
  Sender: FDA-Public Use
  Company Number: None

PATIENT
  Sex: Female
  Weight: 63.5036 kg

DRUGS (1)
  1. ULORIC [Suspect]
     Indication: BLOOD URIC ACID INCREASED
     Dosage: 40 MG 1 DAILY
     Dates: start: 20110514, end: 20110520

REACTIONS (7)
  - DYSPNOEA [None]
  - NAUSEA [None]
  - FATIGUE [None]
  - DIZZINESS [None]
  - NERVOUSNESS [None]
  - DIARRHOEA [None]
  - VOMITING [None]
